FAERS Safety Report 6665359-3 (Version None)
Quarter: 2010Q2

REPORT INFORMATION
  Report Type: 
  Country: None (occurrence: None)
  Receive Date: 20100402
  Receipt Date: 20100323
  Transmission Date: 20101027
  Serious: Yes (Other)
  Sender: FDA-Public Use
  Company Number: US-JNJFOC-20090901468

PATIENT
  Sex: Male
  Weight: 65.77 kg

DRUGS (7)
  1. REMICADE [Suspect]
     Indication: CROHN'S DISEASE
     Dosage: ON INFLIXIMAB FOR 6 YEARS
     Route: 042
  2. HUMIRA [Suspect]
     Indication: CROHN'S DISEASE
  3. PREVACID [Concomitant]
  4. FAMOTIDINE [Concomitant]
  5. TYLENOL-500 [Concomitant]
  6. ALLOPURINOL [Concomitant]
  7. LEVOTHYROXINE SODIUM [Concomitant]

REACTIONS (1)
  - HEPATOSPLENIC T-CELL LYMPHOMA [None]
